FAERS Safety Report 9484293 (Version 2)
Quarter: 2013Q3

REPORT INFORMATION
  Report Type: Spontaneous
  Country: CA (occurrence: CA)
  Receive Date: 20130828
  Receipt Date: 20130828
  Transmission Date: 20140515
  Serious: Yes (Other)
  Sender: FDA-Public Use
  Company Number: CA-AMGEN-KDL343196

PATIENT
  Age: 40 Year
  Sex: Female

DRUGS (2)
  1. ENBREL [Suspect]
     Indication: RHEUMATOID ARTHRITIS
     Dosage: UNK UNK, QWK
     Route: 065
     Dates: start: 20090414
  2. METHOTREXATE [Concomitant]
     Dosage: 15 MG, QWK
     Route: 058
     Dates: start: 200904

REACTIONS (6)
  - VIIth nerve paralysis [Unknown]
  - Brain neoplasm [Unknown]
  - Ear pain [Unknown]
  - Fatigue [Unknown]
  - Headache [Unknown]
  - Localised infection [Recovered/Resolved]
